FAERS Safety Report 8284507-5 (Version None)
Quarter: 2012Q2

REPORT INFORMATION
  Report Type: 
  Country: None (occurrence: None)
  Receive Date: 20120413
  Receipt Date: 20111220
  Transmission Date: 20120825
  Serious: No
  Sender: FDA-Public Use
  Company Number: US-ASTRAZENECA-2011SE57576

PATIENT
  Age: 52 Year
  Sex: Female
  Weight: 110.7 kg

DRUGS (6)
  1. CYMBALTA [Concomitant]
     Indication: DEPRESSION
  2. PROZAC [Concomitant]
     Indication: DEPRESSION
  3. NEXIUM [Suspect]
     Indication: GASTROOESOPHAGEAL REFLUX DISEASE
     Route: 048
     Dates: start: 20080226
  4. PERCOCET [Concomitant]
     Indication: PAIN
  5. CRESTOR [Suspect]
     Indication: LIPIDS ABNORMAL
     Route: 048
     Dates: start: 20080226
  6. BENAZEPRIL HYDROCHLORIDE [Concomitant]
     Indication: HYPERTENSION

REACTIONS (1)
  - NASAL CONGESTION [None]
